FAERS Safety Report 18235682 (Version 1)
Quarter: 2020Q3

REPORT INFORMATION
  Report Type: Spontaneous
  Country: GB (occurrence: GB)
  Receive Date: 20200905
  Receipt Date: 20200905
  Transmission Date: 20201103
  Serious: Yes (Other)
  Sender: FDA-Public Use
  Company Number: GB-ACCORD-199363

PATIENT
  Age: 28 Year
  Sex: Female
  Weight: 170 kg

DRUGS (4)
  1. SERTRALINE [Concomitant]
     Active Substance: SERTRALINE HYDROCHLORIDE
  2. NOVORAPID [Concomitant]
     Active Substance: INSULIN ASPART
  3. FOLIC ACID. [Concomitant]
     Active Substance: FOLIC ACID
  4. ROPINIROLE/ROPINIROLE HYDROCHLORIDE [Suspect]
     Active Substance: ROPINIROLE HYDROCHLORIDE
     Indication: DIABETIC NEUROPATHY
     Route: 048
     Dates: start: 20190101

REACTIONS (1)
  - Pyrexia [Recovered/Resolved]

NARRATIVE: CASE EVENT DATE: 20190101
